FAERS Safety Report 6745519-3 (Version None)
Quarter: 2010Q2

REPORT INFORMATION
  Report Type: 
  Country: None (occurrence: None)
  Receive Date: 20100528
  Receipt Date: 20100514
  Transmission Date: 20101027
  Serious: Yes (Hospitalization, Other)
  Sender: FDA-Public Use
  Company Number: DE-JNJFOC-20090704592

PATIENT
  Sex: Female
  Weight: 55 kg

DRUGS (8)
  1. CONCERTA [Suspect]
     Indication: DRUG USE FOR UNKNOWN INDICATION
     Route: 048
  2. VITAMIN + MINERAL [Concomitant]
     Route: 065
  3. FOLIC ACID [Concomitant]
     Route: 065
  4. MAGNESIOCARD [Concomitant]
     Indication: MUSCLE TIGHTNESS
     Route: 065
  5. COTRIM [Concomitant]
     Indication: PYELONEPHRITIS
     Route: 065
  6. CEFAZOLIN [Concomitant]
     Route: 065
  7. ANESTHETICS [Concomitant]
     Indication: CAESAREAN SECTION
     Route: 065
  8. OXYTOCIN [Concomitant]
     Route: 065

REACTIONS (3)
  - BREECH PRESENTATION [None]
  - DRUG EXPOSURE DURING PREGNANCY [None]
  - PYELONEPHRITIS [None]
